FAERS Safety Report 20182094 (Version 1)
Quarter: 2021Q4

REPORT INFORMATION
  Report Type: Spontaneous
  Country: US (occurrence: None)
  Receive Date: 20211214
  Receipt Date: 20211214
  Transmission Date: 20220303
  Serious: Yes (Hospitalization)
  Sender: FDA-Public Use
  Company Number: None

PATIENT
  Age: 77 Year
  Sex: Female
  Weight: 71.55 kg

DRUGS (21)
  1. CASIRIVIMAB\IMDEVIMAB [Suspect]
     Active Substance: CASIRIVIMAB\IMDEVIMAB
     Indication: COVID-19
     Dosage: FREQUENCY : ONCE;?
     Route: 042
     Dates: start: 20211207, end: 20211207
  2. REMDESIVIR [Concomitant]
     Active Substance: REMDESIVIR
  3. DEXAMETHASONE [Concomitant]
     Active Substance: DEXAMETHASONE
  4. AMLODIPINE [Concomitant]
     Active Substance: AMLODIPINE BESYLATE
  5. BARICITINIB [Concomitant]
     Active Substance: BARICITINIB
  6. FUROSEMIDE [Concomitant]
     Active Substance: FUROSEMIDE
  7. ALBUTEROL [Concomitant]
     Active Substance: ALBUTEROL
  8. ACETAMINOPHEN [Concomitant]
     Active Substance: ACETAMINOPHEN
  9. MORPHINE [Concomitant]
     Active Substance: MORPHINE
     Dates: end: 20211210
  10. QUETIAPINE [Concomitant]
     Active Substance: QUETIAPINE
  11. FAMOTIDINE [Concomitant]
     Active Substance: FAMOTIDINE
     Dates: start: 20211207
  12. MAGNESIUM OXIDE [Concomitant]
     Active Substance: MAGNESIUM OXIDE
     Dates: end: 20211208
  13. PIPERACILLIN AND TAZOBACTAM [Concomitant]
     Active Substance: PIPERACILLIN SODIUM\TAZOBACTAM SODIUM
     Dates: start: 20211207
  14. METHYLPREDNISOLONE SODIUM SUCCINATE [Concomitant]
     Active Substance: METHYLPREDNISOLONE SODIUM SUCCINATE
     Dates: start: 20211207, end: 20211208
  15. DIPHENHYDRAMINE [Concomitant]
     Active Substance: DIPHENHYDRAMINE
     Dates: start: 20211207, end: 20211207
  16. CINACALCET [Concomitant]
     Active Substance: CINACALCET
     Dates: start: 20211207, end: 20211213
  17. CHOLECALCIFEROL [Concomitant]
     Active Substance: CHOLECALCIFEROL
     Dates: start: 20211205
  18. ENOXAPARIN [Concomitant]
     Active Substance: ENOXAPARIN
     Dates: start: 20211205
  19. FERROUS SULFATE [Concomitant]
     Active Substance: FERROUS SULFATE
     Dates: start: 20211205
  20. ICOSAPENT ETHYL [Concomitant]
     Active Substance: ICOSAPENT ETHYL
     Dates: start: 20211206
  21. NAPROXEN [Concomitant]
     Active Substance: NAPROXEN
     Dates: start: 20211205, end: 20211205

REACTIONS (8)
  - Confusional state [None]
  - Dyspnoea [None]
  - Hypertension [None]
  - Body temperature increased [None]
  - Oxygen saturation decreased [None]
  - Mental status changes [None]
  - Lung infiltration [None]
  - Hypoxia [None]

NARRATIVE: CASE EVENT DATE: 20211207
